FAERS Safety Report 8000111-8 (Version None)
Quarter: 2011Q4

REPORT INFORMATION
  Report Type: 
  Country: None (occurrence: None)
  Receive Date: 20111222
  Receipt Date: 20111209
  Transmission Date: 20120403
  Serious: Yes (Life-Threatening, Hospitalization, Other)
  Sender: FDA-Public Use
  Company Number: US-ELI_LILLY_AND_COMPANY-US201110006101

PATIENT
  Sex: Female
  Weight: 63.492 kg

DRUGS (2)
  1. FORTEO [Suspect]
     Indication: OSTEOPOROSIS
     Dosage: 20 UG, QD
     Route: 058
     Dates: start: 20110401, end: 20110928
  2. MULTI-VITAMIN [Concomitant]
     Dosage: UNK, QD

REACTIONS (2)
  - MULTIPLE MYELOMA [None]
  - EVANS SYNDROME [None]
